FAERS Safety Report 23883901 (Version 1)
Quarter: 2024Q2

REPORT INFORMATION
  Report Type: Spontaneous
  Country: IT (occurrence: IT)
  Receive Date: 20240522
  Receipt Date: 20240522
  Transmission Date: 20240716
  Serious: Yes (Hospitalization, Other)
  Sender: FDA-Public Use
  Company Number: None

PATIENT
  Age: 87 Year
  Sex: Female

DRUGS (3)
  1. CEFEPIME [Suspect]
     Active Substance: CEFEPIME HYDROCHLORIDE
     Indication: Osteomyelitis
     Dosage: 6 GRAM, QD
     Route: 042
     Dates: start: 20240408, end: 20240424
  2. LEVOFLOXACIN [Suspect]
     Active Substance: LEVOFLOXACIN
     Indication: Osteomyelitis
     Dosage: UNKNOWN
     Route: 042
     Dates: start: 20240408
  3. TEICOPLANIN [Concomitant]
     Active Substance: TEICOPLANIN
     Indication: Osteomyelitis
     Dosage: UNK
     Route: 042
     Dates: start: 20240408

REACTIONS (1)
  - Status epilepticus [Unknown]

NARRATIVE: CASE EVENT DATE: 20240425
